FAERS Safety Report 4351105-5 (Version None)
Quarter: 2004Q2

REPORT INFORMATION
  Report Type: 
  Country: None (occurrence: None)
  Receive Date: 20040428
  Receipt Date: 20031107
  Transmission Date: 20050107
  Serious: Yes (Other)
  Sender: FDA-Public Use
  Company Number: US-JNJFOC-20030900310

PATIENT
  Age: 44 Year
  Sex: Female

DRUGS (5)
  1. ULTRAM [Suspect]
     Indication: FIBROMYALGIA
     Dosage: ORAL
     Route: 048
     Dates: start: 19990101
  2. EFFEXOR [Suspect]
     Indication: DRUG USE FOR UNKNOWN INDICATION
     Dates: start: 20000201, end: 20030801
  3. LIPITOR [Concomitant]
  4. VIOXX [Concomitant]
  5. WELLBUTRIN [Concomitant]

REACTIONS (6)
  - ADVERSE EVENT [None]
  - DYSKINESIA [None]
  - NIGHT SWEATS [None]
  - PARAESTHESIA [None]
  - PARALYSIS [None]
  - PETIT MAL EPILEPSY [None]
